FAERS Safety Report 8784473 (Version 1)
Quarter: 2012Q4

REPORT INFORMATION
  Report Type: Spontaneous
  Country: GB (occurrence: None)
  Receive Date: 20120830
  Receipt Date: 20120830
  Transmission Date: 20130627
  Serious: Yes (Disabling, Other)
  Sender: FDA-Public Use
  Company Number: IMP_05970_2012

PATIENT
  Age: 52 Year
  Sex: Male

DRUGS (4)
  1. CLONIDINE HYDROCHLORIDE [Suspect]
     Indication: PAIN
     Dosage: (slowly increasing the daily clonidine dosage in weekly steps from 33 to 55mcg, programmable pump) Intrathecal
     Route: 037
  2. CLONIDINE HYDROCHLORIDE [Suspect]
     Indication: PAIN
     Route: 037
  3. TESTOSTERONE [Concomitant]
  4. MORPHINE [Concomitant]

REACTIONS (3)
  - Erectile dysfunction [None]
  - Hypotension [None]
  - Quality of life decreased [None]
